FAERS Safety Report 10360293 (Version 1)
Quarter: 2014Q3

REPORT INFORMATION
  Report Type: Spontaneous
  Country: IN (occurrence: None)
  Receive Date: 20140730
  Receipt Date: 20140730
  Transmission Date: 20150326
  Serious: Yes (Other)
  Sender: FDA-Public Use
  Company Number: IN-AIKEM-000664

PATIENT
  Age: 48 Year
  Sex: Female

DRUGS (1)
  1. AMLODIPINE [Suspect]
     Active Substance: AMLODIPINE BESYLATE
     Indication: ESSENTIAL HYPERTENSION
     Dosage: 1 TIME PER 1 DAY

REACTIONS (6)
  - Ageusia [None]
  - Dysgeusia [None]
  - Palpitations [None]
  - Headache [None]
  - Dizziness [None]
  - Blood pressure increased [None]
